FAERS Safety Report 4300274-1 (Version None)
Quarter: 2004Q1

REPORT INFORMATION
  Report Type: 
  Country: None (occurrence: None)
  Receive Date: 20040218
  Receipt Date: 20040203
  Transmission Date: 20041129
  Serious: Yes (Hospitalization, Disabling, Other)
  Sender: FDA-Public Use
  Company Number: USA040258436

PATIENT
  Age: 62 Year
  Sex: Female
  Weight: 92 kg

DRUGS (5)
  1. PROZAC [Suspect]
     Indication: AGGRESSION
     Dosage: 40 MG/DAY
     Dates: start: 19920101
  2. COUMADIN [Concomitant]
  3. ZESTRIL [Concomitant]
  4. TOPROL-XL [Concomitant]
  5. LIPITOR [Concomitant]

REACTIONS (9)
  - BLOOD CHOLESTEROL INCREASED [None]
  - DEEP VEIN THROMBOSIS [None]
  - LEG CRUSHING [None]
  - LIBIDO INCREASED [None]
  - PULMONARY THROMBOSIS [None]
  - ROAD TRAFFIC ACCIDENT [None]
  - THROMBOSIS [None]
  - UNEXPECTED THERAPEUTIC DRUG EFFECT [None]
  - WEIGHT INCREASED [None]
